FAERS Safety Report 15093332 (Version 2)
Quarter: 2018Q3

REPORT INFORMATION
  Report Type: Spontaneous
  Country: RO (occurrence: RO)
  Receive Date: 20180629
  Receipt Date: 20180802
  Transmission Date: 20181010
  Serious: Yes (Other)
  Sender: FDA-Public Use
  Company Number: RO-MYLANLABS-2018M1046733

PATIENT
  Age: 38 Year
  Sex: Female

DRUGS (1)
  1. EPINEPHRINE MYLAN [Suspect]
     Active Substance: EPINEPHRINE
     Indication: HAEMORRHAGE PROPHYLAXIS

REACTIONS (2)
  - Product use in unapproved indication [Unknown]
  - Stress cardiomyopathy [Unknown]
